FAERS Safety Report 11698943 (Version 2)
Quarter: 2015Q4

REPORT INFORMATION
  Report Type: Spontaneous
  Country: US (occurrence: US)
  Receive Date: 20151104
  Receipt Date: 20151123
  Transmission Date: 20160304
  Serious: No
  Sender: FDA-Public Use
  Company Number: US-GLAXOSMITHKLINE-US2015152787

PATIENT
  Sex: Female
  Weight: 58 kg

DRUGS (1)
  1. ABREVA [Suspect]
     Active Substance: DOCOSANOL
     Indication: ORAL HERPES
     Dosage: UNK
     Route: 061
     Dates: end: 201510

REACTIONS (6)
  - Oral herpes [Not Recovered/Not Resolved]
  - Application site injury [Recovering/Resolving]
  - Infection [Not Recovered/Not Resolved]
  - Condition aggravated [Not Recovered/Not Resolved]
  - Ill-defined disorder [Recovering/Resolving]
  - Application site erythema [Not Recovered/Not Resolved]
